FAERS Safety Report 6675388-1 (Version None)
Quarter: 2010Q2

REPORT INFORMATION
  Report Type: 
  Country: None (occurrence: None)
  Receive Date: 20100409
  Receipt Date: 20100317
  Transmission Date: 20101027
  Serious: No
  Sender: FDA-Public Use
  Company Number: A0850664A

PATIENT
  Age: 60 Year
  Sex: Female

DRUGS (3)
  1. TYKERB [Suspect]
     Indication: BREAST CANCER
     Dosage: 1250MG PER DAY
     Route: 048
     Dates: start: 20100306
  2. VITAMIN C [Suspect]
     Indication: SUPPLEMENTATION THERAPY
     Dosage: 10000MG UNKNOWN
     Route: 065
  3. XELODA [Concomitant]

REACTIONS (6)
  - DECREASED APPETITE [None]
  - DIARRHOEA [None]
  - DRUG INTERACTION [None]
  - MALAISE [None]
  - NAUSEA [None]
  - VOMITING [None]
